FAERS Safety Report 12338195 (Version 1)
Quarter: 2016Q2

REPORT INFORMATION
  Report Type: Spontaneous
  Country: AR (occurrence: AR)
  Receive Date: 20160505
  Receipt Date: 20160505
  Transmission Date: 20160815
  Serious: Yes (Hospitalization)
  Sender: FDA-Public Use
  Company Number: PHHY2016AR054622

PATIENT
  Age: 57 Year
  Sex: Female

DRUGS (3)
  1. TOBRAMYCIN. [Suspect]
     Active Substance: TOBRAMYCIN
     Indication: PRODUCT USED FOR UNKNOWN INDICATION
     Route: 065
  2. TOBI [Suspect]
     Active Substance: TOBRAMYCIN
     Dosage: 0.5 DF, BID (IN THE MORNING AND AT NIGHT)
     Route: 065
  3. TOBI [Suspect]
     Active Substance: TOBRAMYCIN
     Indication: CYSTIC FIBROSIS
     Dosage: 2 DF, QD
     Route: 065
     Dates: start: 2013

REACTIONS (7)
  - Choking sensation [Recovering/Resolving]
  - Dyspnoea [Unknown]
  - Infection [Recovered/Resolved]
  - Asthma [Recovering/Resolving]
  - Chest discomfort [Recovering/Resolving]
  - Product use issue [Unknown]
  - Hypersensitivity [Unknown]

NARRATIVE: CASE EVENT DATE: 2013
